FAERS Safety Report 12185608 (Version 1)
Quarter: 2016Q1

REPORT INFORMATION
  Report Type: Spontaneous
  Country: US (occurrence: US)
  Receive Date: 20160316
  Receipt Date: 20160316
  Transmission Date: 20160526
  Serious: Yes (Hospitalization, Other)
  Sender: FDA-Public Use
  Company Number: US-TAKEDA-2016TUS004287

PATIENT
  Age: 37 Year
  Sex: Male
  Weight: 90.7 kg

DRUGS (1)
  1. ENTYVIO [Suspect]
     Active Substance: VEDOLIZUMAB
     Indication: CROHN^S DISEASE
     Dosage: 300 MG, UNK
     Route: 042
     Dates: start: 201601

REACTIONS (5)
  - Intestinal obstruction [Recovered/Resolved]
  - Abdominal pain [Recovering/Resolving]
  - Blood pressure increased [Recovering/Resolving]
  - Intestinal resection [None]
  - Gastrointestinal infection [Recovering/Resolving]
